FAERS Safety Report 9992876 (Version 1)
Quarter: 2014Q1

REPORT INFORMATION
  Report Type: Other
  Country: TR (occurrence: TR)
  Receive Date: 20140310
  Receipt Date: 20140310
  Transmission Date: 20141002
  Serious: Yes (Other)
  Sender: FDA-Public Use
  Company Number: TR-BRISTOL-MYERS SQUIBB COMPANY-20407946

PATIENT
  Age: 59 Year
  Sex: Male

DRUGS (2)
  1. CETUXIMAB [Suspect]
     Indication: RECTAL CANCER METASTATIC
  2. IRINOTECAN [Suspect]
     Indication: RECTAL CANCER METASTATIC

REACTIONS (1)
  - Oesophageal ulcer [Unknown]
